FAERS Safety Report 18402825 (Version 1)
Quarter: 2020Q4

REPORT INFORMATION
  Report Type: Spontaneous
  Country: PL (occurrence: PL)
  Receive Date: 20201019
  Receipt Date: 20201019
  Transmission Date: 20210114
  Serious: Yes (Death, Hospitalization, Other)
  Sender: FDA-Public Use
  Company Number: PL-B.I. PHARMACEUTICALS,INC./RIDGEFIELD-2020-BI-055186

PATIENT
  Age: 49 Year
  Sex: Male

DRUGS (3)
  1. GILOTRIF [Suspect]
     Active Substance: AFATINIB
     Indication: LUNG ADENOCARCINOMA
     Route: 065
     Dates: start: 201602, end: 201802
  2. DEXAMETHASONE. [Concomitant]
     Active Substance: DEXAMETHASONE
     Indication: PRODUCT USED FOR UNKNOWN INDICATION
     Dosage: 4 MG THREE TIMES A DAY
     Route: 065
  3. DEXAMETHASONE. [Concomitant]
     Active Substance: DEXAMETHASONE
     Route: 065
     Dates: start: 201604

REACTIONS (14)
  - Aortic valve incompetence [Unknown]
  - Diarrhoea [Unknown]
  - General physical health deterioration [Unknown]
  - Pyrexia [Not Recovered/Not Resolved]
  - Paronychia [Not Recovered/Not Resolved]
  - Dizziness [Unknown]
  - Endocarditis [Unknown]
  - Haematochezia [Unknown]
  - Decreased appetite [Unknown]
  - Death [Fatal]
  - Dermatitis acneiform [Unknown]
  - Metastases to central nervous system [Unknown]
  - Disease progression [Unknown]
  - Weight decreased [Unknown]

NARRATIVE: CASE EVENT DATE: 201603
